FAERS Safety Report 24214197 (Version 1)
Quarter: 2024Q3

REPORT INFORMATION
  Report Type: Spontaneous
  Country: US (occurrence: None)
  Receive Date: 20240814
  Receipt Date: 20240814
  Transmission Date: 20241017
  Serious: Yes (Disabling, Other)
  Sender: Public
  Company Number: None

PATIENT
  Age: 55 Year
  Sex: Female

DRUGS (1)
  1. EMGALITY [Suspect]
     Active Substance: GALCANEZUMAB-GNLM

REACTIONS (14)
  - Upper respiratory tract infection [None]
  - Migraine [None]
  - Chest pain [None]
  - Gastrooesophageal reflux disease [None]
  - Anxiety [None]
  - Insomnia [None]
  - Depression [None]
  - Arthralgia [None]
  - Osteoarthritis [None]
  - Rheumatoid arthritis [None]
  - Synovial cyst [None]
  - Mixed connective tissue disease [None]
  - Autoimmune disorder [None]
  - Tooth disorder [None]
